FAERS Safety Report 10723482 (Version 2)
Quarter: 2015Q1

REPORT INFORMATION
  Report Type: Spontaneous
  Country: MX (occurrence: MX)
  Receive Date: 20150120
  Receipt Date: 20150120
  Transmission Date: 20150721
  Serious: Yes (Hospitalization)
  Sender: FDA-Public Use
  Company Number: MX-SA-2015SA005662

PATIENT
  Age: 85 Year
  Sex: Female
  Weight: 69 kg

DRUGS (6)
  1. XARELTO [Concomitant]
     Active Substance: RIVAROXABAN
     Route: 048
     Dates: start: 201410
  2. STILNOX [Suspect]
     Active Substance: ZOLPIDEM TARTRATE
     Indication: INSOMNIA
     Dosage: 10 MG OF ZOLPIDEM (STILNOX ?) EVERY 24 HOURS (AT NIGHT)
     Route: 048
     Dates: start: 2005
  3. STILNOX [Suspect]
     Active Substance: ZOLPIDEM TARTRATE
     Indication: ANXIETY
     Dosage: 10 MG OF ZOLPIDEM 1 ? OR 2 TABLETS / 24 HOURS
     Route: 048
  4. STILNOX [Suspect]
     Active Substance: ZOLPIDEM TARTRATE
     Indication: INSOMNIA
     Dosage: 10 MG OF ZOLPIDEM 1 ? OR 2 TABLETS / 24 HOURS
     Route: 048
  5. ATORVASTATIN [Concomitant]
     Active Substance: ATORVASTATIN
     Route: 048
     Dates: start: 201410
  6. STILNOX [Suspect]
     Active Substance: ZOLPIDEM TARTRATE
     Indication: ANXIETY
     Dosage: 10 MG OF ZOLPIDEM (STILNOX ?) EVERY 24 HOURS (AT NIGHT)
     Route: 048
     Dates: start: 2005

REACTIONS (4)
  - Overdose [Unknown]
  - Off label use [Unknown]
  - Embolism [Recovered/Resolved]
  - Insomnia [Recovered/Resolved]

NARRATIVE: CASE EVENT DATE: 201410
